FAERS Safety Report 8898974 (Version 1)
Quarter: 2012Q4

REPORT INFORMATION
  Report Type: 
  Country: US (occurrence: US)
  Receive Date: 20121108
  Receipt Date: 20121108
  Transmission Date: 20130627
  Serious: No
  Sender: FDA-Public Use
  Company Number: US-AMGEN-USASP2012034684

PATIENT
  Age: 60 Year
  Sex: Female
  Weight: 56.24 kg

DRUGS (7)
  1. ENBREL [Suspect]
     Indication: PRODUCT USED FOR UNKNOWN INDICATION
     Dosage: 50 mg, qwk
     Route: 058
  2. ENBREL [Suspect]
     Dosage: UNK
  3. LIPITOR [Concomitant]
     Dosage: 10 mg, UNK
  4. ASA [Concomitant]
     Dosage: 81 mg, UNK
  5. VITAMIN C                          /00008001/ [Concomitant]
     Dosage: 500 mg, UNK
  6. COQ10                              /00517201/ [Concomitant]
     Dosage: 50 mg, UNK
  7. MULTIVITAMIN                       /00097801/ [Concomitant]

REACTIONS (1)
  - Herpes zoster [Unknown]
